FAERS Safety Report 7295699-9 (Version None)
Quarter: 2011Q1

REPORT INFORMATION
  Report Type: 
  Country: None (occurrence: None)
  Receive Date: 20110216
  Receipt Date: 20101230
  Transmission Date: 20110831
  Serious: No
  Sender: FDA-Public Use
  Company Number: US-ABBOTT-11P-163-0694616-00

PATIENT
  Sex: Male
  Weight: 61.29 kg

DRUGS (2)
  1. ASPIRIN [Concomitant]
     Indication: PRODUCT USED FOR UNKNOWN INDICATION
     Dosage: PRIOR TO SIMCOR DOSE
     Route: 048
  2. SIMCOR [Suspect]
     Indication: DYSLIPIDAEMIA
     Dosage: 1000/40MG IN THE EVENING
     Route: 048
     Dates: start: 20101229

REACTIONS (3)
  - FLUSHING [None]
  - FEELING HOT [None]
  - PRURITUS [None]
